FAERS Safety Report 9528705 (Version 1)
Quarter: 2013Q3

REPORT INFORMATION
  Report Type: Spontaneous
  Country: US (occurrence: US)
  Receive Date: 20130917
  Receipt Date: 20130917
  Transmission Date: 20140515
  Serious: No
  Sender: FDA-Public Use
  Company Number: US-BANPHARM-20120404

PATIENT
  Age: 54 Year
  Sex: Female
  Weight: 75.3 kg

DRUGS (3)
  1. ZYRTEC LIQUID GELS 10 MG [Suspect]
     Indication: HYPERSENSITIVITY
     Dosage: 1DF, ONCE,
     Route: 048
     Dates: start: 20121101
  2. SUPPLEMENTS [Concomitant]
  3. HERBAL REMEDIES [Concomitant]

REACTIONS (2)
  - Therapeutic response unexpected with drug substitution [Unknown]
  - Drug effect decreased [Unknown]
